FAERS Safety Report 12787697 (Version 1)
Quarter: 2016Q3

REPORT INFORMATION
  Report Type: Spontaneous
  Country: US (occurrence: US)
  Receive Date: 20160927
  Receipt Date: 20160927
  Transmission Date: 20161109
  Serious: Yes (Other)
  Sender: FDA-Public Use
  Company Number: None

PATIENT
  Age: 55 Year
  Sex: Female

DRUGS (2)
  1. HYDROCODONE/ACETAMINOPHEN [Suspect]
     Active Substance: ACETAMINOPHEN\HYDROCODONE
     Indication: MYALGIA
     Route: 048
     Dates: start: 20160917, end: 20160926
  2. HYDROCODONE/ACETAMINOPHEN [Suspect]
     Active Substance: ACETAMINOPHEN\HYDROCODONE
     Indication: ARTHRALGIA
     Route: 048
     Dates: start: 20160917, end: 20160926

REACTIONS (4)
  - Feeling jittery [None]
  - Tachycardia [None]
  - Abnormal dreams [None]
  - Product quality issue [None]

NARRATIVE: CASE EVENT DATE: 20160926
